FAERS Safety Report 19901075 (Version 1)
Quarter: 2021Q3

REPORT INFORMATION
  Report Type: Spontaneous
  Country: NL (occurrence: NL)
  Receive Date: 20210930
  Receipt Date: 20210930
  Transmission Date: 20211014
  Serious: Yes (Other)
  Sender: FDA-Public Use
  Company Number: NL-PFIZER INC-202101210104

PATIENT
  Age: 36 Year
  Sex: Female

DRUGS (2)
  1. SOLU?CORTEF [Suspect]
     Active Substance: HYDROCORTISONE SODIUM SUCCINATE
     Dosage: UNK
  2. THYRAX [LEVOTHYROXINE] [Concomitant]
     Dosage: UNK

REACTIONS (1)
  - Lung disorder [Unknown]
